FAERS Safety Report 17609062 (Version 4)
Quarter: 2020Q2

REPORT INFORMATION
  Report Type: Spontaneous
  Country: IT (occurrence: IT)
  Receive Date: 20200401
  Receipt Date: 20200430
  Transmission Date: 20200713
  Serious: Yes (Hospitalization, Other)
  Sender: FDA-Public Use
  Company Number: IT-AUROBINDO-AUR-APL-2020-016298

PATIENT
  Age: 36 Year
  Sex: Male

DRUGS (2)
  1. CLOZAPINE TABLETS [Suspect]
     Active Substance: CLOZAPINE
     Dosage: GRADUALLY SWITCHED TO CLOZAPINE TREATMENT, 400 MG/D
     Route: 065
  2. CLOZAPINE TABLETS [Suspect]
     Active Substance: CLOZAPINE
     Indication: SCHIZOPHRENIA
     Dosage: 400 MILLIGRAM, ONCE A DAY (GRADUALLY SWITCHED TO CLOZAPINE TREATMENT)
     Route: 065

REACTIONS (2)
  - Aplasia pure red cell [Recovered/Resolved]
  - Haematotoxicity [Recovered/Resolved]
